FAERS Safety Report 4622410-X (Version None)
Quarter: 2005Q1

REPORT INFORMATION
  Report Type: 
  Country: None (occurrence: None)
  Receive Date: 20050325
  Receipt Date: 20050325
  Transmission Date: 20050727
  Serious: Yes (Other)
  Sender: FDA-Public Use
  Company Number: None

PATIENT
  Sex: Female
  Weight: 58.9676 kg

DRUGS (2)
  1. PLAVIX [Suspect]
     Dosage: 1 EACH MORN
  2. ASPIRIN [Suspect]
     Dosage: 81 - 1 EA. MORNING

REACTIONS (5)
  - COUGH [None]
  - EAR PAIN [None]
  - EPISTAXIS [None]
  - HEADACHE [None]
  - INJECTION SITE HAEMORRHAGE [None]
